FAERS Safety Report 4312627-6 (Version None)
Quarter: 2004Q1

REPORT INFORMATION
  Report Type: 
  Country: None (occurrence: None)
  Receive Date: 20040305
  Receipt Date: 20031223
  Transmission Date: 20041129
  Serious: Yes (Death, Hospitalization, Other)
  Sender: FDA-Public Use
  Company Number: WAES 0312USA02529

PATIENT
  Age: 19 Year
  Sex: Female

DRUGS (7)
  1. ELSPAR [Suspect]
     Indication: ACUTE LYMPHOCYTIC LEUKAEMIA
  2. ELSPAR [Suspect]
  3. CYCLOPHOSPHAMIDE [Concomitant]
  4. DAUNORUBICIN [Concomitant]
  5. PREDNISONE [Suspect]
     Indication: ACUTE LYMPHOCYTIC LEUKAEMIA
  6. PREDNISONE [Suspect]
  7. VINCRISTINE SULFATE [Concomitant]

REACTIONS (9)
  - BLOOD POTASSIUM INCREASED [None]
  - BLOOD SODIUM INCREASED [None]
  - DIABETIC HYPEROSMOLAR COMA [None]
  - HYPERGLYCAEMIA [None]
  - HYPOTONIA [None]
  - LACTIC ACIDOSIS [None]
  - LEUKAEMIA RECURRENT [None]
  - METABOLIC ACIDOSIS [None]
  - SEPTIC SHOCK [None]
